FAERS Safety Report 15136661 (Version 1)
Quarter: 2018Q3

REPORT INFORMATION
  Report Type: Spontaneous
  Country: US (occurrence: US)
  Receive Date: 20180618
  Receipt Date: 20180618
  Transmission Date: 20181010
  Serious: Yes (Other)
  Sender: FDA-Public Use
  Company Number: None

PATIENT
  Age: 71 Year
  Sex: Female
  Weight: 60.3 kg

DRUGS (4)
  1. EYE VITES [Concomitant]
  2. ROSUVASTATIN 10 MG [Suspect]
     Active Substance: ROSUVASTATIN
     Indication: BLOOD CHOLESTEROL INCREASED
     Dosage: ?          QUANTITY:1 TABLET(S);?
     Route: 048
     Dates: start: 20180312, end: 20180609
  3. VITAMIN D [Concomitant]
     Active Substance: CHOLECALCIFEROL
  4. FLAXSEED OIL CAPS [Concomitant]

REACTIONS (8)
  - Diarrhoea [None]
  - Irritability [None]
  - Insomnia [None]
  - Malaise [None]
  - Weight increased [None]
  - Feeling abnormal [None]
  - Constipation [None]
  - Poor quality sleep [None]

NARRATIVE: CASE EVENT DATE: 20180609
